FAERS Safety Report 5248637-4 (Version None)
Quarter: 2007Q1

REPORT INFORMATION
  Report Type: 
  Country: None (occurrence: None)
  Receive Date: 20070222
  Receipt Date: 20070212
  Transmission Date: 20070707
  Serious: Yes (Hospitalization)
  Sender: FDA-Public Use
  Company Number: 236578

PATIENT
  Age: 56 Year
  Sex: Male
  Weight: 94.8 kg

DRUGS (9)
  1. XOLAIR [Suspect]
     Indication: ASTHMA
     Dosage: 300 MG,Q4W
     Dates: start: 20061001
  2. ADVAIR DISKUS 100/50 [Concomitant]
  3. SINGULAIR [Concomitant]
  4. NEXIUM [Concomitant]
  5. CLONIDINE [Concomitant]
  6. KLONOPIN [Concomitant]
  7. ATARAX [Concomitant]
  8. PREDNISONE TAB [Concomitant]
  9. PAXIL [Concomitant]

REACTIONS (4)
  - MULTI-ORGAN FAILURE [None]
  - PNEUMONIA [None]
  - STAPHYLOCOCCAL INFECTION [None]
  - STATUS ASTHMATICUS [None]
